FAERS Safety Report 5932583-4 (Version None)
Quarter: 2008Q4

REPORT INFORMATION
  Report Type: 
  Country: None (occurrence: None)
  Receive Date: 20081028
  Receipt Date: 20081022
  Transmission Date: 20090506
  Serious: Yes (Hospitalization, Other)
  Sender: FDA-Public Use
  Company Number: GB-NOVOPROD-280544

PATIENT
  Sex: Male

DRUGS (2)
  1. NOVORAPID [Suspect]
     Indication: DIABETES MELLITUS
  2. LEVEMIR [Suspect]
     Indication: DIABETES MELLITUS

REACTIONS (3)
  - DIABETIC KETOACIDOSIS [None]
  - HIP FRACTURE [None]
  - MEDICATION ERROR [None]
